FAERS Safety Report 26163363 (Version 1)
Quarter: 2025Q4

REPORT INFORMATION
  Report Type: Report from Study
  Country: CN (occurrence: CN)
  Receive Date: 20251216
  Receipt Date: 20251216
  Transmission Date: 20260117
  Serious: Yes (Death, Other)
  Sender: ROCHE
  Company Number: CN-ROCHE-10000457911

PATIENT

DRUGS (1)
  1. TRASTUZUMAB [Suspect]
     Active Substance: TRASTUZUMAB
     Indication: Breast cancer metastatic

REACTIONS (5)
  - Coronavirus infection [Unknown]
  - Cardiotoxicity [Unknown]
  - Aortic aneurysm rupture [Recovered/Resolved]
  - Cardiac failure congestive [Fatal]
  - Cardiac dysfunction [Recovered/Resolved]
